FAERS Safety Report 10380715 (Version 1)
Quarter: 2014Q3

REPORT INFORMATION
  Report Type: Spontaneous
  Country: US (occurrence: US)
  Receive Date: 20140813
  Receipt Date: 20140813
  Transmission Date: 20150326
  Serious: Yes (Hospitalization)
  Sender: FDA-Public Use
  Company Number: US-BAYER-2014-117039

PATIENT
  Age: 75 Year
  Sex: Male

DRUGS (1)
  1. ACETYLSALICYLIC ACID (} 100 MG) [Suspect]
     Active Substance: ASPIRIN
     Indication: HEADACHE

REACTIONS (10)
  - Duodenal ulcer [None]
  - Potentiating drug interaction [None]
  - Dyspepsia [None]
  - Regurgitation [None]
  - Abdominal pain upper [None]
  - Nausea [None]
  - Obstruction gastric [None]
  - Gastric ulcer [None]
  - Gastrooesophageal reflux disease [None]
  - Vomiting [None]
